FAERS Safety Report 4981091-6 (Version None)
Quarter: 2006Q2

REPORT INFORMATION
  Report Type: 
  Country: None (occurrence: None)
  Receive Date: 20060424
  Receipt Date: 20060418
  Transmission Date: 20061013
  Serious: Yes (Life-Threatening, Hospitalization, Other)
  Sender: FDA-Public Use
  Company Number: GB-BRISTOL-MYERS SQUIBB COMPANY-13349295

PATIENT
  Age: 29 Year
  Sex: Female
  Weight: 45 kg

DRUGS (12)
  1. EFAVIRENZ [Suspect]
     Route: 048
     Dates: start: 20060323, end: 20060327
  2. ABACAVIR [Suspect]
     Route: 048
     Dates: start: 20060323, end: 20060327
  3. LAMIVUDINE [Suspect]
     Route: 048
     Dates: start: 20060324, end: 20060328
  4. RIFAMPICIN [Concomitant]
     Route: 048
     Dates: start: 20060113
  5. ETHAMBUTOL [Concomitant]
     Route: 048
     Dates: start: 20060113
  6. FOLIC ACID [Concomitant]
     Route: 048
  7. PARACETAMOL [Concomitant]
     Route: 048
  8. GABAPENTIN [Concomitant]
     Route: 048
     Dates: start: 20060329
  9. TAZOCIN [Concomitant]
     Dates: start: 20060324, end: 20060330
  10. FLUCONAZOLE [Concomitant]
     Route: 048
     Dates: start: 20060328
  11. PYRIDOXINE HCL [Concomitant]
     Route: 048
     Dates: start: 20060113
  12. AMITRIPTYLINE [Concomitant]
     Route: 048

REACTIONS (1)
  - METABOLIC ACIDOSIS [None]
